FAERS Safety Report 17369835 (Version 1)
Quarter: 2020Q1

REPORT INFORMATION
  Report Type: Other
  Country: GB (occurrence: GB)
  Receive Date: 20200205
  Receipt Date: 20200205
  Transmission Date: 20200409
  Serious: Yes (Hospitalization, Other)
  Sender: FDA-Public Use
  Company Number: GB-EMCURE PHARMACEUTICALS LTD-2016-EPL-0195

PATIENT
  Age: 57 Year
  Sex: Male

DRUGS (14)
  1. INVOKANA [Suspect]
     Active Substance: CANAGLIFLOZIN
     Dosage: 300 MILLIGRAM
     Route: 048
     Dates: start: 20160208, end: 20160512
  2. ASPIRIN                            /00002701/ [Concomitant]
     Active Substance: ASPIRIN
     Indication: MYOCARDIAL ISCHAEMIA
     Dosage: 75 MILLIGRAM, DOSAGE FORM: UNSPECIFIED
     Dates: start: 20060227
  3. BISOPROLOL [Concomitant]
     Active Substance: BISOPROLOL
     Indication: MYOCARDIAL ISCHAEMIA
     Dosage: 2.5 MILLIGRAM, DOSAGE FORM: UNSPECIFIED
     Dates: start: 20060227
  4. FUROSEMIDE. [Concomitant]
     Active Substance: FUROSEMIDE
     Indication: MYOCARDIAL ISCHAEMIA
  5. LANSOPRAZOLE. [Concomitant]
     Active Substance: LANSOPRAZOLE
     Indication: GASTROOESOPHAGEAL REFLUX DISEASE
     Dosage: 30 MILLIGRAM, DAILY,
     Dates: start: 20040124
  6. PREGABALIN. [Concomitant]
     Active Substance: PREGABALIN
     Indication: NEUROPATHY PERIPHERAL
     Dosage: 300 MILLIGRAM, DAILY,
     Dates: start: 20040226
  7. METFORMIN [Suspect]
     Active Substance: METFORMIN HYDROCHLORIDE
     Indication: DIABETES MELLITUS
     Dosage: 2 GRAM, DAILY, DOSE WAS 1000 (UNITS UNSPECIFIED)
     Dates: start: 20051006
  8. DULOXETINE. [Concomitant]
     Active Substance: DULOXETINE
     Indication: NEUROPATHY PERIPHERAL
     Dosage: 60 MILLIGRAM, DAILY,
     Dates: start: 20110724
  9. INSULIN [Suspect]
     Active Substance: INSULIN NOS
     Indication: DIABETES MELLITUS
     Dosage: UNK, DAILY, INSULIN MIX, HUMALOG,
     Dates: start: 20120822
  10. LOSARTAN. [Concomitant]
     Active Substance: LOSARTAN
     Indication: BLOOD PRESSURE INCREASED
     Dosage: 25 MILLIGRAM, DAILY, DOSAGE FORM: UNSPECIFIED
     Dates: start: 20150108
  11. FUROSEMIDE. [Concomitant]
     Active Substance: FUROSEMIDE
     Indication: BLOOD PRESSURE INCREASED
     Dosage: DAILY, DOSAGE ^80 MG -MORNING^ ^40 MG - NOON^
     Dates: start: 20141212
  12. MONOMIL [Concomitant]
     Active Substance: ISOSORBIDE MONONITRATE
     Indication: MYOCARDIAL ISCHAEMIA
     Dosage: 30 MILLIGRAM, DAILY, DOSAGE FORM: UNSPECIFIED
     Dates: start: 20101118
  13. INVOKANA [Suspect]
     Active Substance: CANAGLIFLOZIN
     Indication: DIABETES MELLITUS
     Dosage: 100 MILLIGRAM
     Route: 048
     Dates: start: 20151120, end: 20160208
  14. SIMVASTATIN. [Concomitant]
     Active Substance: SIMVASTATIN
     Indication: MYOCARDIAL ISCHAEMIA
     Dosage: 40 MILLIGRAM, DOSAGE FORM: UNSPECIFIED
     Dates: start: 20060227

REACTIONS (2)
  - Skin discolouration [Unknown]
  - Extremity necrosis [Unknown]

NARRATIVE: CASE EVENT DATE: 20160512
